FAERS Safety Report 17583554 (Version 1)
Quarter: 2020Q1

REPORT INFORMATION
  Report Type: Spontaneous
  Country: US (occurrence: US)
  Receive Date: 20200326
  Receipt Date: 20200326
  Transmission Date: 20200409
  Serious: No
  Sender: FDA-Public Use
  Company Number: US-SHIRE-US202011204

PATIENT
  Sex: Male

DRUGS (3)
  1. CARBATROL [Suspect]
     Active Substance: CARBAMAZEPINE
     Indication: SEIZURE
     Dosage: 100 MILLIGRAM, 2X/DAY:BID
     Route: 065
  2. CARBATROL [Suspect]
     Active Substance: CARBAMAZEPINE
     Dosage: 200 MILLIGRAM, 2X/DAY:BID
     Route: 065
  3. CARBATROL [Suspect]
     Active Substance: CARBAMAZEPINE
     Dosage: 300 MILLIGRAM, 2X/DAY:BID
     Route: 065

REACTIONS (2)
  - Rash [Unknown]
  - Pruritus [Unknown]
